FAERS Safety Report 20428740 (Version 1)
Quarter: 2022Q1

REPORT INFORMATION
  Report Type: Spontaneous
  Country: IN (occurrence: IN)
  Receive Date: 20220204
  Receipt Date: 20220204
  Transmission Date: 20220424
  Serious: Yes (Hospitalization, Other)
  Sender: FDA-Public Use
  Company Number: IN-MLMSERVICE-20220120-3326650-1

PATIENT
  Age: 24 Year
  Sex: Female

DRUGS (2)
  1. FLUOROURACIL [Suspect]
     Active Substance: FLUOROURACIL
     Indication: Vitiligo
     Dosage: 5 %
     Route: 061
  2. TACROLIMUS [Concomitant]
     Active Substance: TACROLIMUS
     Indication: Vitiligo
     Dosage: 0.03 %
     Route: 061

REACTIONS (4)
  - Conjunctival haemorrhage [Recovered/Resolved]
  - Heavy menstrual bleeding [Recovered/Resolved]
  - Aplastic anaemia [Recovering/Resolving]
  - Myelosuppression [Recovering/Resolving]
